FAERS Safety Report 23618300 (Version 2)
Quarter: 2024Q1

REPORT INFORMATION
  Report Type: Spontaneous
  Country: US (occurrence: US)
  Receive Date: 20240311
  Receipt Date: 20240312
  Transmission Date: 20240410
  Serious: Yes (Hospitalization, Other)
  Sender: FDA-Public Use
  Company Number: US-AUROBINDO-AUR-APL-2024-009779

PATIENT
  Age: 2 Year
  Sex: Male

DRUGS (17)
  1. DEXAMETHASONE [Suspect]
     Active Substance: DEXAMETHASONE
     Indication: Haemophagocytic lymphohistiocytosis
     Dosage: UNK
     Route: 065
  2. METHYLPREDNISOLONE [Suspect]
     Active Substance: METHYLPREDNISOLONE
     Indication: Haemophagocytic lymphohistiocytosis
     Dosage: 10 MILLIGRAM/KILOGRAM, ONCE A DAY
     Route: 042
  3. PREDNISOLONE [Suspect]
     Active Substance: PREDNISOLONE
     Indication: Haemophagocytic lymphohistiocytosis
     Dosage: 2 MILLILITRE PER KILOGRAM, ONCE A DAY
     Route: 065
  4. CYCLOSPORINE [Suspect]
     Active Substance: CYCLOSPORINE
     Indication: Haemophagocytic lymphohistiocytosis
     Dosage: UNK
     Route: 042
  5. EMAPALUMAB [Suspect]
     Active Substance: EMAPALUMAB
     Indication: Haemophagocytic lymphohistiocytosis
     Dosage: 1 MILLIGRAM/KILOGRAM, TWO TIMES A DAYWITH SUBSEQUENT WEEKLY DOSE ESCALATION (3 MG/KG HD 13, 6 MG/KG
     Route: 065
  6. EMAPALUMAB [Suspect]
     Active Substance: EMAPALUMAB
     Dosage: 10 MG/KG TWICE WEEKLY
     Route: 065
  7. ETOPOSIDE [Suspect]
     Active Substance: ETOPOSIDE
     Indication: Haemophagocytic lymphohistiocytosis
     Dosage: 150 MG/M2 EVERY WEEK
     Route: 065
  8. PENTAMIDINE [Suspect]
     Active Substance: PENTAMIDINE
     Indication: Pneumocystis jirovecii pneumonia
     Dosage: UNK
     Route: 065
  9. TACROLIMUS [Suspect]
     Active Substance: TACROLIMUS
     Indication: Haemophagocytic lymphohistiocytosis
     Dosage: 0.17 MILLILITRE PER KILOGRAM, ONCE A DAY
     Route: 048
  10. TACROLIMUS [Suspect]
     Active Substance: TACROLIMUS
     Dosage: 0.03 MILLILITRE PER KILOGRAM, ONCE A DAY
     Route: 048
  11. ANAKINRA [Concomitant]
     Active Substance: ANAKINRA
     Indication: Haemophagocytic lymphohistiocytosis
     Dosage: INCREASED 25 MG/KG/DAY
     Route: 042
  12. ANAKINRA [Concomitant]
     Active Substance: ANAKINRA
     Dosage: 37.5 MILLIGRAM/KILOGRAM, ONCE A DAY
     Route: 042
  13. ANAKINRA [Concomitant]
     Active Substance: ANAKINRA
     Dosage: INCREASED TO 46 MG/KG/DA
     Route: 042
  14. ANAKINRA [Concomitant]
     Active Substance: ANAKINRA
     Dosage: 46 MG/KG/DAY TO 2 MG/KG/DAY OVER THE COURSE OF 37 DAYS.
     Route: 042
  15. ANAKINRA [Concomitant]
     Active Substance: ANAKINRA
     Dosage: 100 MILLIGRAM
     Route: 058
  16. CIDOFOVIR [Concomitant]
     Active Substance: CIDOFOVIR
     Indication: Viraemia
     Dosage: UNK
     Route: 065
  17. FUROSEMIDE [Concomitant]
     Active Substance: FUROSEMIDE
     Indication: Pulmonary oedema
     Dosage: UNK
     Route: 065

REACTIONS (3)
  - Pneumocystis jirovecii pneumonia [Unknown]
  - Drug ineffective [Unknown]
  - Off label use [Unknown]
